FAERS Safety Report 7727429-8 (Version None)
Quarter: 2011Q3

REPORT INFORMATION
  Report Type: 
  Country: None (occurrence: None)
  Receive Date: 20110902
  Receipt Date: 20110824
  Transmission Date: 20111222
  Serious: Yes (Other)
  Sender: FDA-Public Use
  Company Number: US-ASTRAZENECA-2011SE47764

PATIENT
  Age: 69 Year
  Sex: Male
  Weight: 93.4 kg

DRUGS (1)
  1. CRESTOR [Suspect]
     Route: 048
     Dates: start: 20100101, end: 20110701

REACTIONS (8)
  - MUSCULAR WEAKNESS [None]
  - TENDON INJURY [None]
  - PULMONARY HAEMORRHAGE [None]
  - ADVERSE DRUG REACTION [None]
  - OEDEMA PERIPHERAL [None]
  - FALL [None]
  - GAIT DISTURBANCE [None]
  - MALAISE [None]
